FAERS Safety Report 5645047-2 (Version None)
Quarter: 2008Q1

REPORT INFORMATION
  Report Type: 
  Country: None (occurrence: None)
  Receive Date: 20080229
  Receipt Date: 20080218
  Transmission Date: 20080703
  Serious: Yes (Hospitalization)
  Sender: FDA-Public Use
  Company Number: US-ELI_LILLY_AND_COMPANY-US200802001444

PATIENT
  Sex: Female

DRUGS (6)
  1. FORTEO [Suspect]
     Indication: PELVIC FRACTURE
     Dates: start: 20061113, end: 20070514
  2. FORTEO [Suspect]
     Dates: start: 20071209
  3. PROZAC [Concomitant]
     Dosage: 20 MG, DAILY (1/D)
  4. CLONAZEPAM [Concomitant]
     Indication: ANXIETY
     Dosage: 0.5 MG, 2/D
  5. CALCIUM [Concomitant]
  6. VITAMINS [Concomitant]

REACTIONS (5)
  - BLADDER NEOPLASM [None]
  - CATARACT [None]
  - HAEMATURIA [None]
  - HYPERTENSION [None]
  - STRESS [None]
